FAERS Safety Report 6711501-5 (Version None)
Quarter: 2010Q2

REPORT INFORMATION
  Report Type: 
  Country: None (occurrence: None)
  Receive Date: 20100505
  Receipt Date: 20100420
  Transmission Date: 20101027
  Serious: Yes (Other)
  Sender: FDA-Public Use
  Company Number: PHEH2010US03175

PATIENT
  Sex: Female

DRUGS (12)
  1. RECLAST [Suspect]
     Indication: OSTEOPOROSIS
     Dosage: 5 MG/100ML, YEARLY
     Route: 042
     Dates: start: 20080819
  2. RECLAST [Suspect]
     Dosage: 5 MG, YEARLY
     Route: 042
     Dates: start: 20090901
  3. DIURETICS [Concomitant]
  4. LASIX [Concomitant]
     Indication: HYPERTENSION
     Dosage: 40 MG, QD
     Route: 048
  5. ALDACTONE [Concomitant]
     Indication: HYPERTENSION
     Dosage: UNK
     Dates: end: 20090903
  6. CODEINE SULFATE [Concomitant]
     Dosage: UNK
     Dates: end: 20090903
  7. ASPIRIN [Concomitant]
  8. PLAVIX [Concomitant]
  9. NEXIUM [Concomitant]
  10. AMLODIPINE [Concomitant]
     Indication: HYPERTENSION
     Dosage: 5 MG, QD
     Route: 048
  11. METOPROLOL [Concomitant]
     Indication: HYPERTENSION
     Dosage: 50 MG, QD
     Route: 048
  12. ANALGESICS [Concomitant]

REACTIONS (13)
  - ARTHRALGIA [None]
  - BLOOD UREA INCREASED [None]
  - BONE PAIN [None]
  - CREATININE RENAL CLEARANCE DECREASED [None]
  - DEHYDRATION [None]
  - GASTRITIS [None]
  - GASTROINTESTINAL HAEMORRHAGE [None]
  - HAEMATOCHEZIA [None]
  - HYDRONEPHROSIS [None]
  - NERVOUSNESS [None]
  - OEDEMA PERIPHERAL [None]
  - PALLOR [None]
  - RENAL FAILURE [None]
